FAERS Safety Report 6751624-8 (Version None)
Quarter: 2010Q2

REPORT INFORMATION
  Report Type: 
  Country: None (occurrence: None)
  Receive Date: 20100602
  Receipt Date: 20100528
  Transmission Date: 20101027
  Serious: Yes (Hospitalization)
  Sender: FDA-Public Use
  Company Number: A0810654A

PATIENT
  Age: 58 Year
  Sex: Female

DRUGS (2)
  1. AVANDIA [Suspect]
     Indication: DIABETES MELLITUS
     Route: 048
  2. AVANDAMET [Suspect]
     Indication: DIABETES MELLITUS
     Dates: start: 20061101, end: 20090201

REACTIONS (5)
  - AMNESIA [None]
  - ASTHENIA [None]
  - CARDIAC DISORDER [None]
  - INCISION SITE PAIN [None]
  - MYOCARDIAL INFARCTION [None]
